FAERS Safety Report 14237831 (Version 2)
Quarter: 2017Q4

REPORT INFORMATION
  Report Type: Spontaneous
  Country: AR (occurrence: AR)
  Receive Date: 20171130
  Receipt Date: 20171212
  Transmission Date: 20180321
  Serious: Yes (Hospitalization, Other)
  Sender: FDA-Public Use
  Company Number: AR-AMGEN-ARGSP2017177719

PATIENT
  Age: 70 Year
  Sex: Female

DRUGS (2)
  1. ENBREL [Suspect]
     Active Substance: ETANERCEPT
     Dosage: 50 MG, WEEKLY
     Route: 065
  2. ENBREL [Suspect]
     Active Substance: ETANERCEPT
     Indication: RHEUMATOID ARTHRITIS
     Dosage: 50 MG, WEEKLY
     Route: 065
     Dates: start: 20170722

REACTIONS (12)
  - Dyspnoea [Recovered/Resolved]
  - Skin exfoliation [Unknown]
  - Arrhythmia [Recovered/Resolved]
  - Rash generalised [Recovering/Resolving]
  - Palpitations [Recovered/Resolved]
  - Generalised erythema [Recovered/Resolved]
  - Skin discolouration [Unknown]
  - Poisoning [Recovering/Resolving]
  - Cardiac disorder [Recovered/Resolved]
  - Choking sensation [Recovered/Resolved]
  - Pruritus [Recovered/Resolved]
  - Malaise [Recovered/Resolved]

NARRATIVE: CASE EVENT DATE: 201709
